FAERS Safety Report 11867569 (Version 1)
Quarter: 2015Q4

REPORT INFORMATION
  Report Type: Spontaneous
  Country: CA (occurrence: CA)
  Receive Date: 20151224
  Receipt Date: 20151224
  Transmission Date: 20160305
  Serious: Yes (Hospitalization, Other)
  Sender: FDA-Public Use
  Company Number: CA-009507513-1009USA04598

PATIENT
  Age: 22 Year
  Sex: Male

DRUGS (1)
  1. PROPECIA [Suspect]
     Active Substance: FINASTERIDE
     Indication: ALOPECIA
     Dosage: UNK MG, UNK
     Route: 048
     Dates: start: 200709, end: 20100623

REACTIONS (6)
  - Sperm concentration decreased [Unknown]
  - Testicular disorder [Unknown]
  - Penis disorder [Unknown]
  - Suicide attempt [Unknown]
  - Semen analysis abnormal [Unknown]
  - Erectile dysfunction [Unknown]

NARRATIVE: CASE EVENT DATE: 2009
